FAERS Safety Report 23240837 (Version 2)
Quarter: 2023Q4

REPORT INFORMATION
  Report Type: Spontaneous
  Country: US (occurrence: US)
  Receive Date: 20231129
  Receipt Date: 20231205
  Transmission Date: 20240109
  Serious: Yes (Other)
  Sender: FDA-Public Use
  Company Number: US-PFIZER INC-PV202300191727

PATIENT
  Age: 36 Year
  Sex: Female

DRUGS (6)
  1. TESTOSTERONE CYPIONATE [Suspect]
     Active Substance: TESTOSTERONE CYPIONATE
     Indication: Steroid therapy
     Dosage: 350 MG, WEEKLY (250 MG-350 MG)
  2. TESTOSTERONE CYPIONATE [Suspect]
     Active Substance: TESTOSTERONE CYPIONATE
     Indication: Muscle building therapy
     Dosage: 250 MG, WEEKLY (250 MG-350 MG)
  3. TESTOSTERONE CYPIONATE [Suspect]
     Active Substance: TESTOSTERONE CYPIONATE
     Dosage: 100 MG, WEEKLY (GRADUALLY DECREASED)
  4. TRENBOLONE ACETATE [Suspect]
     Active Substance: TRENBOLONE ACETATE
     Indication: Steroid therapy
     Dosage: UNK
  5. TRENBOLONE ACETATE [Suspect]
     Active Substance: TRENBOLONE ACETATE
     Indication: Muscle building therapy
  6. ANASTROZOLE [Concomitant]
     Active Substance: ANASTROZOLE
     Dosage: UNK, WEEKLY

REACTIONS (3)
  - Drug abuse [Unknown]
  - Acute kidney injury [Unknown]
  - Amenorrhoea [Unknown]
